FAERS Safety Report 8778726 (Version 3)
Quarter: 2012Q4

REPORT INFORMATION
  Report Type: 
  Country: US (occurrence: US)
  Receive Date: 20120912
  Receipt Date: 20121130
  Transmission Date: 20130627
  Serious: Yes (Other)
  Sender: FDA-Public Use
  Company Number: US-PFIZER INC-2012221401

PATIENT
  Age: 26 Year
  Sex: Female
  Weight: 77.1 kg

DRUGS (4)
  1. SUTENT [Suspect]
     Indication: NEUROENDOCRINE CARCINOMA
     Dosage: 12.5 mg, 3x/day
     Route: 048
     Dates: start: 20120806, end: 20120827
  2. SUTENT [Suspect]
     Dosage: 12.5 mg, 3x/day
     Route: 048
     Dates: start: 20120807, end: 20120828
  3. VIMPAT [Concomitant]
     Indication: SEIZURES
     Dosage: UNK
  4. AVIANE [Concomitant]
     Indication: BIRTH CONTROL
     Dosage: UNK

REACTIONS (4)
  - Tumour haemorrhage [Not Recovered/Not Resolved]
  - Periorbital contusion [Recovered/Resolved]
  - Epistaxis [Recovered/Resolved]
  - Headache [Recovered/Resolved]
